FAERS Safety Report 4976563-4 (Version None)
Quarter: 2006Q2

REPORT INFORMATION
  Report Type: 
  Country: None (occurrence: None)
  Receive Date: 20060419
  Receipt Date: 20050926
  Transmission Date: 20061013
  Serious: Yes (Hospitalization, Disabling, Other)
  Sender: FDA-Public Use
  Company Number: US-MERCK-0509USA03873

PATIENT
  Age: 31 Year
  Sex: Male
  Weight: 86 kg

DRUGS (2)
  1. VIOXX [Suspect]
     Indication: HIP SWELLING
     Route: 048
     Dates: start: 20040420
  2. VIOXX [Suspect]
     Route: 048
     Dates: start: 20040706, end: 20040710

REACTIONS (6)
  - CARDIOVASCULAR DISORDER [None]
  - CHEST PAIN [None]
  - EMBOLISM [None]
  - HERNIA [None]
  - NERVE INJURY [None]
  - THROMBOSIS [None]
